FAERS Safety Report 16502667 (Version 1)
Quarter: 2019Q3

REPORT INFORMATION
  Report Type: Spontaneous
  Country: AT (occurrence: AT)
  Receive Date: 20190701
  Receipt Date: 20190701
  Transmission Date: 20191004
  Serious: Yes (Congenital Anomaly)
  Sender: FDA-Public Use
  Company Number: PHHY2019AT145155

PATIENT

DRUGS (1)
  1. LEVETIRACETAM. [Suspect]
     Active Substance: LEVETIRACETAM
     Indication: MATERNAL EXPOSURE DURING PREGNANCY
     Dosage: MATERNAL DOSE: 3000 MG QD
     Route: 064
     Dates: start: 2012, end: 201305

REACTIONS (4)
  - Congenital multiplex arthrogryposis [Unknown]
  - Maternal exposure during pregnancy [Unknown]
  - Dysmorphism [Unknown]
  - Osteochondrosis [Unknown]

NARRATIVE: CASE EVENT DATE: 2012
